FAERS Safety Report 18034890 (Version 1)
Quarter: 2020Q3

REPORT INFORMATION
  Report Type: Spontaneous
  Country: CA (occurrence: CA)
  Receive Date: 20200716
  Receipt Date: 20200716
  Transmission Date: 20201103
  Serious: Yes (Life-Threatening, Hospitalization, Other)
  Sender: FDA-Public Use
  Company Number: CA-AUROBINDO-AUR-APL-2020-035296

PATIENT
  Age: 43 Year
  Sex: Male
  Weight: 113 kg

DRUGS (1)
  1. DEXMEDETOMIDINE HYDROCHLORIDE INJECTION [Suspect]
     Active Substance: DEXMEDETOMIDINE HYDROCHLORIDE
     Indication: DELIRIUM
     Dosage: 1 DOSAGE FORM
     Route: 065

REACTIONS (4)
  - Acute kidney injury [Recovered/Resolved]
  - Hyperthermia [Recovered/Resolved]
  - Rhabdomyolysis [Recovered/Resolved]
  - Blood creatinine increased [Recovered/Resolved]
